FAERS Safety Report 16760132 (Version 1)
Quarter: 2019Q3

REPORT INFORMATION
  Report Type: Spontaneous
  Country: US (occurrence: US)
  Receive Date: 20190830
  Receipt Date: 20190830
  Transmission Date: 20191005
  Serious: No
  Sender: FDA-Public Use
  Company Number: US-CELGENEUS-USA-20190807451

PATIENT
  Age: 69 Year
  Sex: Male

DRUGS (2)
  1. OTEZLA [Suspect]
     Active Substance: APREMILAST
     Indication: PSORIASIS
     Dosage: TWO WEEK STARTER PACK
     Route: 048
     Dates: start: 20190718
  2. OTEZLA [Suspect]
     Active Substance: APREMILAST
     Dosage: 60 MILLICURIES
     Route: 048
     Dates: start: 201908

REACTIONS (3)
  - Headache [Unknown]
  - Psoriasis [Unknown]
  - Product dose omission [Unknown]

NARRATIVE: CASE EVENT DATE: 2019
